FAERS Safety Report 16136596 (Version 1)
Quarter: 2019Q1

REPORT INFORMATION
  Report Type: Spontaneous
  Country: US (occurrence: US)
  Receive Date: 20190329
  Receipt Date: 20190329
  Transmission Date: 20190418
  Serious: No
  Sender: FDA-Public Use
  Company Number: US-TEIKOKU PHARMA USA-TPU2019-00215

PATIENT
  Sex: Female
  Weight: 80.81 kg

DRUGS (7)
  1. LIPITOR [Concomitant]
     Active Substance: ATORVASTATIN CALCIUM
     Indication: BLOOD CHOLESTEROL
  2. BABY ASPIRIN [Concomitant]
     Active Substance: ASPIRIN
     Indication: ANTICOAGULANT THERAPY
  3. LIDODERM [Suspect]
     Active Substance: LIDOCAINE
     Indication: ARTHRITIS
     Dosage: ON MY RIGHT KNEE, CUT THE PATCH IN HALF AND PUT ONE ON MY KNEE AND ONE JUST BELOW IT TO MAKE IT STAY
     Route: 061
  4. COREG [Concomitant]
     Active Substance: CARVEDILOL
     Indication: CARDIAC DISORDER
  5. DIOVAN [Concomitant]
     Active Substance: VALSARTAN
     Indication: CARDIAC DISORDER
  6. MAGNESIUM [Concomitant]
     Active Substance: MAGNESIUM
     Indication: HEART RATE
  7. ZANTAC [Concomitant]
     Active Substance: RANITIDINE HYDROCHLORIDE
     Indication: GASTROINTESTINAL DISORDER

REACTIONS (3)
  - Hypertension [Unknown]
  - Cardiac disorder [Unknown]
  - Lymphoedema [Not Recovered/Not Resolved]

NARRATIVE: CASE EVENT DATE: 2017
